FAERS Safety Report 9907978 (Version 2)
Quarter: 2014Q1

REPORT INFORMATION
  Report Type: Spontaneous
  Country: CA (occurrence: CA)
  Receive Date: 20140219
  Receipt Date: 20140219
  Transmission Date: 20141002
  Serious: Yes (Disabling, Other)
  Sender: FDA-Public Use
  Company Number: CA-009507513-1211CAN006924

PATIENT
  Age: 54 Year
  Sex: Female
  Weight: 73.92 kg

DRUGS (9)
  1. JANUMET [Suspect]
     Indication: TYPE 2 DIABETES MELLITUS
     Dosage: 50/1000 MG
     Route: 048
     Dates: start: 20110207, end: 20121114
  2. LEVEMIR [Concomitant]
     Indication: TYPE 2 DIABETES MELLITUS
     Dosage: 26 IU, HS
     Route: 058
     Dates: start: 20110207
  3. ASPIRIN [Concomitant]
     Indication: CARDIOVASCULAR EVENT PROPHYLAXIS
     Dosage: 81 MG, QD
     Route: 048
  4. COVERSYL (PERINDOPRIL ARGININE) [Concomitant]
     Indication: HYPERTENSION
     Dosage: 8 MG, QD
     Route: 048
  5. EZETROL [Concomitant]
     Indication: DYSLIPIDAEMIA
     Dosage: 10 MG, QD
     Route: 048
  6. CRESTOR [Concomitant]
     Indication: DYSLIPIDAEMIA
     Dosage: 10 MG, QD
     Route: 048
  7. DIAMICRON MR [Concomitant]
     Indication: PRODUCT USED FOR UNKNOWN INDICATION
     Dosage: 120 MG, QD
     Route: 048
  8. NOVORAPID [Concomitant]
     Indication: TYPE 2 DIABETES MELLITUS
     Dosage: UNK, TID
     Route: 058
     Dates: start: 20120802
  9. COTAZYM ECS 20 [Concomitant]
     Route: 048

REACTIONS (11)
  - Mucous stools [Unknown]
  - Early satiety [Unknown]
  - Condition aggravated [Unknown]
  - Decreased appetite [Unknown]
  - Hyperglycaemia [Unknown]
  - Pancreatitis chronic [Unknown]
  - Pancreatitis [Unknown]
  - Abdominal pain [Unknown]
  - Diabetes mellitus [Unknown]
  - Weight decreased [Unknown]
  - Pain [Unknown]
